FAERS Safety Report 8923587 (Version 1)
Quarter: 2012Q4

REPORT INFORMATION
  Report Type: 
  Country: FR (occurrence: FR)
  Receive Date: 20121123
  Receipt Date: 20121123
  Transmission Date: 20130627
  Serious: Yes (Life-Threatening)
  Sender: FDA-Public Use
  Company Number: FR-SANOFI-AVENTIS-2012SA083353

PATIENT
  Age: 3 Month
  Sex: Male
  Weight: 3 kg

DRUGS (16)
  1. LOVENOX [Suspect]
     Indication: DRUG USE FOR UNKNOWN INDICATION
     Route: 058
     Dates: end: 20121023
  2. ASPEGIC [Suspect]
     Indication: DRUG USE FOR UNKNOWN INDICATION
     Route: 048
     Dates: start: 20120824, end: 20121023
  3. LOPRIL [Suspect]
     Indication: DRUG USE FOR UNKNOWN INDICATION
     Route: 048
     Dates: start: 20121015, end: 20121016
  4. LOPRIL [Suspect]
     Indication: DRUG USE FOR UNKNOWN INDICATION
     Route: 048
     Dates: start: 20121017, end: 20121018
  5. LOPRIL [Suspect]
     Indication: DRUG USE FOR UNKNOWN INDICATION
     Route: 048
     Dates: start: 20121019, end: 20121023
  6. BACTRIM [Suspect]
     Indication: STAPHYLOCOCCAL INFECTION
     Route: 048
     Dates: start: 20121015, end: 20121023
  7. HEPARIN [Concomitant]
     Dates: start: 201207
  8. ALDACTONE [Concomitant]
     Route: 048
     Dates: start: 20120826, end: 20121023
  9. FUROSEMIDE [Concomitant]
     Route: 048
     Dates: start: 20120731
  10. PARACETAMOL [Concomitant]
     Route: 048
     Dates: start: 201207
  11. UVESTEROL [Concomitant]
     Dates: start: 201207
  12. ORAMORPH [Concomitant]
     Dates: start: 20120927
  13. CEFTAZIDIME [Concomitant]
     Dates: start: 20121008, end: 20121014
  14. AMIKACIN [Concomitant]
     Dates: end: 20121009
  15. SYNAGIS ^ABBOTT^ [Concomitant]
     Dates: start: 20121015, end: 20121015
  16. PENTAVAC [Concomitant]
     Dates: start: 20121018, end: 20121018

REACTIONS (4)
  - Renal failure acute [Recovered/Resolved]
  - Peritoneal dialysis [None]
  - Metabolic acidosis [None]
  - Pyelonephritis [None]
